FAERS Safety Report 17844334 (Version 2)
Quarter: 2020Q2

REPORT INFORMATION
  Report Type: Spontaneous
  Country: CH (occurrence: CH)
  Receive Date: 20200601
  Receipt Date: 20200610
  Transmission Date: 20200714
  Serious: Yes (Other)
  Sender: FDA-Public Use
  Company Number: CH-ABBVIE-20K-151-3418704-00

PATIENT
  Age: 64 Year
  Sex: Male
  Weight: 72 kg

DRUGS (2)
  1. VENCLYXTO [Suspect]
     Active Substance: VENETOCLAX
     Route: 048
     Dates: start: 20200519
  2. VENCLYXTO [Suspect]
     Active Substance: VENETOCLAX
     Indication: MANTLE CELL LYMPHOMA
     Dosage: RAMP UP WEEK 1
     Route: 048
     Dates: start: 20200515, end: 2020

REACTIONS (12)
  - Blood phosphorus abnormal [Recovered/Resolved]
  - Lymphocyte count increased [Unknown]
  - Blood creatinine abnormal [Not Recovered/Not Resolved]
  - Mantle cell lymphoma [Unknown]
  - Tumour lysis syndrome [Unknown]
  - Hyperuricaemia [Recovered/Resolved]
  - Off label use [Unknown]
  - Blood uric acid abnormal [Unknown]
  - Hyperkalaemia [Recovered/Resolved]
  - Renal impairment [Recovered/Resolved]
  - Renal failure [Recovered/Resolved]
  - Hyperviscosity syndrome [Unknown]

NARRATIVE: CASE EVENT DATE: 2020
